FAERS Safety Report 15411154 (Version 1)
Quarter: 2018Q3

REPORT INFORMATION
  Report Type: Spontaneous
  Country: US (occurrence: US)
  Receive Date: 20180921
  Receipt Date: 20180921
  Transmission Date: 20181010
  Serious: No
  Sender: FDA-Public Use
  Company Number: US-PFIZER INC-2018382677

PATIENT
  Age: 73 Year
  Sex: Female

DRUGS (2)
  1. NEURONTIN [Suspect]
     Active Substance: GABAPENTIN
     Indication: PAIN
     Dosage: UNK, 4X/DAY (TAKE ONE TO TWO CAPSULE)
     Route: 048
  2. NEURONTIN [Suspect]
     Active Substance: GABAPENTIN
     Indication: ABDOMINAL PAIN LOWER

REACTIONS (6)
  - Fatigue [Unknown]
  - Tenderness [Unknown]
  - Product use in unapproved indication [Unknown]
  - Intentional product misuse [Unknown]
  - Blood pressure increased [Unknown]
  - Spinal pain [Unknown]
